FAERS Safety Report 8682974 (Version 5)
Quarter: 2015Q1

REPORT INFORMATION
  Report Type: Report from Study
  Country: BR (occurrence: BR)
  Receive Date: 20120725
  Receipt Date: 20150122
  Transmission Date: 20150721
  Serious: Yes (Hospitalization, Other)
  Sender: FDA-Public Use
  Company Number: BR-ROCHE-1091279

PATIENT
  Sex: Female
  Weight: 79 kg

DRUGS (8)
  1. MABTHERA [Suspect]
     Active Substance: RITUXIMAB
     Route: 042
     Dates: start: 20120210
  2. DIOVAN [Concomitant]
     Active Substance: VALSARTAN
  3. MABTHERA [Suspect]
     Active Substance: RITUXIMAB
     Route: 042
     Dates: start: 20130201
  4. MABTHERA [Suspect]
     Active Substance: RITUXIMAB
     Indication: RHEUMATOID ARTHRITIS
     Route: 042
     Dates: start: 20110101
  5. MABTHERA [Suspect]
     Active Substance: RITUXIMAB
     Route: 042
     Dates: start: 20130215
  6. MABTHERA [Suspect]
     Active Substance: RITUXIMAB
     Route: 042
     Dates: start: 20110214
  7. MABTHERA [Suspect]
     Active Substance: RITUXIMAB
     Route: 042
     Dates: start: 20140429
  8. PREDNISONE. [Concomitant]
     Active Substance: PREDNISONE

REACTIONS (16)
  - Fall [Unknown]
  - Gallbladder disorder [Recovered/Resolved]
  - Femur fracture [Recovered/Resolved]
  - Pyrexia [Recovered/Resolved]
  - Malaise [Not Recovered/Not Resolved]
  - Renal disorder [Unknown]
  - Gait disturbance [Recovered/Resolved]
  - Cyst [Recovered/Resolved]
  - Lower limb fracture [Recovered/Resolved]
  - Hepatic steatosis [Unknown]
  - Pain [Recovered/Resolved]
  - Leiomyoma [Recovered/Resolved]
  - Gallbladder injury [Unknown]
  - Weight increased [Recovering/Resolving]
  - Abasia [Recovered/Resolved]
  - Hypersensitivity [Unknown]
